FAERS Safety Report 6924976-3 (Version None)
Quarter: 2010Q3

REPORT INFORMATION
  Report Type: 
  Country: None (occurrence: None)
  Receive Date: 20100810
  Receipt Date: 20100720
  Transmission Date: 20110219
  Serious: Yes (Other)
  Sender: FDA-Public Use
  Company Number: JPI-P-010511

PATIENT
  Age: 45 Year
  Sex: Female

DRUGS (6)
  1. XYREM [Suspect]
     Indication: CATAPLEXY
     Dosage: SEE IMAGE
     Route: 048
     Dates: start: 20090420, end: 20090701
  2. XYREM [Suspect]
     Indication: CATAPLEXY
     Dosage: SEE IMAGE
     Route: 048
     Dates: start: 20091115
  3. XYREM [Suspect]
     Indication: CATAPLEXY
     Dosage: SEE IMAGE
     Route: 048
     Dates: start: 20091115
  4. LEVETIRACETAM [Concomitant]
  5. PROPRANOLOL [Concomitant]
  6. BACLOFEN [Concomitant]

REACTIONS (13)
  - CONVULSION [None]
  - DISORIENTATION [None]
  - ENURESIS [None]
  - FEELING ABNORMAL [None]
  - GAIT DISTURBANCE [None]
  - HEADACHE [None]
  - IMPAIRED WORK ABILITY [None]
  - INITIAL INSOMNIA [None]
  - LIBIDO DECREASED [None]
  - MULTIPLE SCLEROSIS [None]
  - NAUSEA [None]
  - RHINORRHOEA [None]
  - TOOTHACHE [None]
